FAERS Safety Report 4463551-X (Version None)
Quarter: 2004Q3

REPORT INFORMATION
  Report Type: 
  Country: None (occurrence: None)
  Receive Date: 20040928
  Receipt Date: 20040906
  Transmission Date: 20050211
  Serious: Yes (Hospitalization)
  Sender: FDA-Public Use
  Company Number: B0345443A

PATIENT
  Age: 64 Year
  Sex: Female
  Weight: 97.7955 kg

DRUGS (2)
  1. AUGMENTIN [Suspect]
     Indication: ERYSIPELAS
     Dosage: 625 MG / THREE TIMES PER DAY/ORAL
     Route: 048
     Dates: start: 20040717, end: 20040802
  2. CALCIUM DOBESILATE CAPSULE (DOBESILATE CALCIUM) [Suspect]
     Indication: OEDEMA
     Dosage: 500 MG/TWICE PER DAY/ORAL
     Route: 048
     Dates: start: 20040729, end: 20040801

REACTIONS (1)
  - CLOSTRIDIUM COLITIS [None]
